FAERS Safety Report 25096654 (Version 1)
Quarter: 2025Q1

REPORT INFORMATION
  Report Type: Spontaneous
  Country: JP (occurrence: JP)
  Receive Date: 20250319
  Receipt Date: 20250319
  Transmission Date: 20250409
  Serious: Yes (Hospitalization)
  Sender: FERRING
  Company Number: JP-ferring-EVA202500343FERRINGPH

PATIENT

DRUGS (1)
  1. DESMOPRESSIN ACETATE [Suspect]
     Active Substance: DESMOPRESSIN ACETATE
     Indication: Hypophysitis
     Dosage: 60 UG, 2 TIMES DAILY
     Route: 048

REACTIONS (4)
  - Fall [Unknown]
  - Loss of consciousness [Unknown]
  - Hyponatraemia [Unknown]
  - Labelled drug-food interaction medication error [Unknown]
